FAERS Safety Report 4492398-3 (Version None)
Quarter: 2004Q4

REPORT INFORMATION
  Report Type: 
  Country: None (occurrence: None)
  Receive Date: 20041101
  Receipt Date: 20041101
  Transmission Date: 20050328
  Serious: No
  Sender: FDA-Public Use
  Company Number: None

PATIENT
  Age: 49 Year
  Sex: Female
  Weight: 54.4316 kg

DRUGS (5)
  1. AVONEX [Suspect]
     Indication: MULTIPLE SCLEROSIS
     Dosage: 1 INJECTION PER WEEK
     Dates: start: 20030117, end: 20030622
  2. AVONEX [Suspect]
  3. (AVONEX) INTERFERON BETA-LA [Concomitant]
  4. AVONEX [Suspect]
  5. AVONEX [Suspect]

REACTIONS (1)
  - HEPATITIS C POSITIVE [None]
